FAERS Safety Report 9759246 (Version 1)
Quarter: 2013Q4

REPORT INFORMATION
  Report Type: Spontaneous
  Country: US (occurrence: None)
  Receive Date: 20131216
  Receipt Date: 20131216
  Transmission Date: 20140711
  Serious: Yes (Other)
  Sender: FDA-Public Use
  Company Number: 163-21880-12111650(0)

PATIENT
  Age: 60 Year
  Sex: Female
  Weight: 108 kg

DRUGS (1)
  1. REVLIMID [Suspect]
     Indication: NON-HODGKIN^S LYMPHOMA
     Dosage: 10 MG, 21 IN 28 D, PO?10 MG, 1 IN 2 D, PO ?5 MG, 1 IN 1 D, PO

REACTIONS (2)
  - Presyncope [None]
  - Tremor [None]
